FAERS Safety Report 5277132-1 (Version None)
Quarter: 2007Q1

REPORT INFORMATION
  Report Type: 
  Country: None (occurrence: None)
  Receive Date: 20070322
  Receipt Date: 20070322
  Transmission Date: 20070707
  Serious: Yes (Other)
  Sender: FDA-Public Use
  Company Number: None

PATIENT
  Age: 43 Year
  Sex: Female
  Weight: 74.8435 kg

DRUGS (2)
  1. AMBIEN [Suspect]
     Indication: DEPRESSION
     Dates: start: 19950801, end: 19960310
  2. AMBIEN [Suspect]
     Indication: POST-TRAUMATIC STRESS DISORDER
     Dates: start: 19950801, end: 19960310

REACTIONS (1)
  - AMNESIA [None]
